FAERS Safety Report 17833867 (Version 1)
Quarter: 2020Q2

REPORT INFORMATION
  Report Type: Spontaneous
  Country: US (occurrence: US)
  Receive Date: 20200528
  Receipt Date: 20200528
  Transmission Date: 20200714
  Serious: Yes (Hospitalization)
  Sender: FDA-Public Use
  Company Number: None

PATIENT
  Age: 41 Year
  Sex: Female
  Weight: 73.5 kg

DRUGS (10)
  1. PEMBROLIZUMAB. [Suspect]
     Active Substance: PEMBROLIZUMAB
     Indication: CERVIX CARCINOMA
     Dosage: ?          OTHER FREQUENCY:EVERY 21 DAYS;?
     Route: 042
     Dates: start: 20200302, end: 20200415
  2. MORPHINE 15MG [Concomitant]
     Active Substance: MORPHINE
     Dates: start: 20191202
  3. ALBUTEROL. [Concomitant]
     Active Substance: ALBUTEROL
     Dates: start: 20160101
  4. TRAZADONE 75MG [Concomitant]
     Dates: start: 20190701
  5. EFFEXOR [Concomitant]
     Active Substance: VENLAFAXINE HYDROCHLORIDE
     Dates: start: 20190701
  6. LYRICA [Concomitant]
     Active Substance: PREGABALIN
     Dates: start: 20191202
  7. LOPRESSOR 50MG [Concomitant]
     Dates: start: 20200520
  8. AMITRIPTYLINE [Concomitant]
     Active Substance: AMITRIPTYLINE
     Dates: start: 20200203
  9. BUSPAR 10MG [Concomitant]
     Dates: start: 20190701
  10. SINGULAIR [Concomitant]
     Active Substance: MONTELUKAST SODIUM
     Dates: start: 20190101

REACTIONS (3)
  - Therapy cessation [None]
  - Tumour pain [None]
  - Gait inability [None]

NARRATIVE: CASE EVENT DATE: 20200527
